FAERS Safety Report 23140591 (Version 1)
Quarter: 2023Q4

REPORT INFORMATION
  Report Type: Spontaneous
  Country: JP (occurrence: JP)
  Receive Date: 20231103
  Receipt Date: 20231103
  Transmission Date: 20240109
  Serious: Yes (Hospitalization)
  Sender: FDA-Public Use
  Company Number: JP-NOVEN PHARMACEUTICALS, INC.-2023-NOV-JP001209

PATIENT
  Age: 32 Year
  Sex: Female

DRUGS (2)
  1. ESTRADIOL [Suspect]
     Active Substance: ESTRADIOL
     Indication: Hysterosalpingo-oophorectomy
     Dosage: 0.72 MG, 1 IN 1 DAY
     Route: 062
  2. ESTRADIOL [Suspect]
     Active Substance: ESTRADIOL
     Indication: Artificial menopause

REACTIONS (2)
  - Catamenial pneumothorax [Recovered/Resolved]
  - Endometriosis [Unknown]
